FAERS Safety Report 6421203-0 (Version None)
Quarter: 2009Q4

REPORT INFORMATION
  Report Type: 
  Country: None (occurrence: None)
  Receive Date: 20091028
  Receipt Date: 20091019
  Transmission Date: 20100525
  Serious: Yes (Other)
  Sender: FDA-Public Use
  Company Number: 2009-03864

PATIENT
  Age: 69 Year
  Sex: Male

DRUGS (24)
  1. VELCADE [Suspect]
     Indication: MULTIPLE MYELOMA
     Dosage: 3.1 MG, INTRAVENOUS
     Route: 042
     Dates: start: 20090112, end: 20090820
  2. TANESPIMYCIN(TANESPIMYCIN) [Suspect]
     Indication: MULTIPLE MYELOMA
     Dosage: 806 MG, INTRAVENOUS
     Route: 042
     Dates: start: 20090112, end: 20090420
  3. ACYCLOVIR [Concomitant]
  4. AREDIA [Concomitant]
  5. CENTRUM SILVER (TOCOPHERYL ACETATE, CALCIUM ZINC, MINERALS NOS, VITAMI [Concomitant]
  6. FISH OIL (FISH OIL) [Concomitant]
  7. FOLIC ACID [Concomitant]
  8. HYDROCHLOROTHIAZIDE [Concomitant]
  9. LEVOCARNITINE (LEVOCARNITINE) [Concomitant]
  10. LASIX [Concomitant]
  11. LIPITOR [Concomitant]
  12. THIOCTIC ACID (THIOCTIC ACID) [Concomitant]
  13. LISINOPRIL [Concomitant]
  14. LYRICA [Concomitant]
  15. OXYCODONE HCL [Concomitant]
  16. OXYCONTIN [Concomitant]
  17. POTASSIUM CHLORIDE [Concomitant]
  18. PREVACID [Concomitant]
  19. VITAMIN B COMPLEX (PYRIDOXINE HYDROCHLORIDE, THIAMINE HYDROCHLORIDE, R [Concomitant]
  20. VITAMIN E (VEGETABEL OIL) [Concomitant]
  21. ZOLOFT [Concomitant]
  22. ASPIRIN [Concomitant]
  23. ATIVAN [Concomitant]
  24. ASPIRIN [Concomitant]

REACTIONS (1)
  - OPTIC ISCHAEMIC NEUROPATHY [None]
